FAERS Safety Report 6851621-8 (Version None)
Quarter: 2010Q3

REPORT INFORMATION
  Report Type: 
  Country: None (occurrence: None)
  Receive Date: 20100717
  Receipt Date: 20090325
  Transmission Date: 20110219
  Serious: Yes (Hospitalization, Other)
  Sender: FDA-Public Use
  Company Number: US-PFIZER INC-2008005867

PATIENT
  Sex: Female
  Weight: 113.4 kg

DRUGS (15)
  1. CHANTIX [Suspect]
     Indication: SMOKING CESSATION THERAPY
     Dosage: UNK
     Route: 048
     Dates: start: 20070904, end: 20071101
  2. XANAX [Concomitant]
  3. NITROGLYCERIN [Concomitant]
  4. XOPENEX [Concomitant]
  5. ENALAPRIL [Concomitant]
  6. COREG [Concomitant]
  7. LEVOTHYROXINE [Concomitant]
  8. DIGOXIN [Concomitant]
  9. METFORMIN HYDROCHLORIDE/SITAGLIPTIN [Concomitant]
  10. GLIPIZIDE [Concomitant]
  11. FUROSEMIDE [Concomitant]
  12. ACETYLSALICYLIC ACID [Concomitant]
  13. TRAMADOL [Concomitant]
  14. HYOSCYAMINE [Concomitant]
  15. OMEPRAZOLE [Concomitant]

REACTIONS (4)
  - DEPRESSION [None]
  - MOOD SWINGS [None]
  - PANIC ATTACK [None]
  - WITHDRAWAL SYNDROME [None]
